FAERS Safety Report 9063854 (Version 3)
Quarter: 2013Q1

REPORT INFORMATION
  Report Type: Spontaneous
  Country: JP (occurrence: JP)
  Receive Date: 20130212
  Receipt Date: 20130324
  Transmission Date: 20140127
  Serious: Yes (Death, Other)
  Sender: FDA-Public Use
  Company Number: JP-ROCHE-1153747

PATIENT
  Age: 61 Year
  Sex: Female
  Weight: 94 kg

DRUGS (10)
  1. AVASTIN [Suspect]
     Indication: BREAST CANCER METASTATIC
     Route: 041
     Dates: start: 20120507, end: 20120507
  2. PACLITAXEL [Concomitant]
     Indication: BREAST CANCER METASTATIC
     Route: 041
     Dates: start: 20120409, end: 20120507
  3. NORVASC [Concomitant]
     Indication: HYPERTENSION
     Route: 048
     Dates: end: 20120516
  4. BLOPRESS [Concomitant]
     Indication: HYPERTENSION
     Route: 048
     Dates: end: 20120516
  5. FLUITRAN [Concomitant]
     Indication: HYPERTENSION
     Route: 048
     Dates: end: 20120516
  6. NOVAMIN [Concomitant]
     Indication: PROPHYLAXIS OF NAUSEA AND VOMITING
     Route: 048
     Dates: start: 20120404, end: 20120516
  7. RINDERON [Concomitant]
     Indication: CANCER PAIN
     Route: 048
     Dates: start: 20120413, end: 20120516
  8. GASTER D [Concomitant]
     Indication: GASTRITIS
     Route: 048
     Dates: start: 20120413, end: 20120516
  9. MAGMITT [Concomitant]
     Indication: CONSTIPATION
     Route: 048
     Dates: start: 20120415, end: 20120516
  10. LASIX [Concomitant]
     Indication: OEDEMA PERIPHERAL
     Route: 048
     Dates: start: 20120502, end: 20120516

REACTIONS (8)
  - Disease progression [Fatal]
  - Large intestine perforation [Fatal]
  - Compression fracture [Unknown]
  - Cancer pain [Unknown]
  - Gastric dilatation [Unknown]
  - Respiratory failure [Unknown]
  - Postoperative wound infection [Unknown]
  - Malaise [Unknown]
